FAERS Safety Report 5875064-9 (Version None)
Quarter: 2008Q3

REPORT INFORMATION
  Report Type: 
  Country: None (occurrence: None)
  Receive Date: 20080908
  Receipt Date: 20080908
  Transmission Date: 20090109
  Serious: Yes (Death)
  Sender: FDA-Public Use
  Company Number: None

PATIENT
  Age: 59 Year
  Sex: Female

DRUGS (1)
  1. ERLOTINIB [Suspect]
     Indication: LUNG CANCER METASTATIC
     Dosage: 150 MG ORAL ONCE DAILY
     Route: 048
     Dates: start: 20080521, end: 20080903

REACTIONS (7)
  - DIARRHOEA [None]
  - FAECES DISCOLOURED [None]
  - FATIGUE [None]
  - GASTROINTESTINAL HAEMORRHAGE [None]
  - HYPOXIA [None]
  - LUNG DISORDER [None]
  - PNEUMONIA [None]
